FAERS Safety Report 17486301 (Version 3)
Quarter: 2020Q2

REPORT INFORMATION
  Report Type: Spontaneous
  Country: US (occurrence: US)
  Receive Date: 20200303
  Receipt Date: 20200520
  Transmission Date: 20200713
  Serious: No
  Sender: FDA-Public Use
  Company Number: US-AMGEN-USASP2020035451

PATIENT
  Age: 67 Year
  Sex: Female
  Weight: 66.4 kg

DRUGS (1)
  1. REPATHA [Suspect]
     Active Substance: EVOLOCUMAB
     Indication: PRODUCT USED FOR UNKNOWN INDICATION
     Dosage: 140 MILLIGRAM, Q2WK
     Route: 065
     Dates: start: 20200329

REACTIONS (1)
  - Device use error [Unknown]
